FAERS Safety Report 6336797-3 (Version None)
Quarter: 2009Q3

REPORT INFORMATION
  Report Type: 
  Country: None (occurrence: None)
  Receive Date: 20090901
  Receipt Date: 20090820
  Transmission Date: 20100115
  Serious: Yes (Hospitalization)
  Sender: FDA-Public Use
  Company Number: US-ROCHE-642717

PATIENT
  Sex: Female

DRUGS (1)
  1. CELLCEPT [Suspect]
     Indication: LUPUS NEPHRITIS
     Dosage: FORM: PILL
     Route: 065

REACTIONS (16)
  - ADVERSE REACTION [None]
  - ANXIETY [None]
  - CHEST PAIN [None]
  - CHILLS [None]
  - DEAFNESS [None]
  - DIZZINESS [None]
  - GAIT DISTURBANCE [None]
  - GASTROINTESTINAL CANDIDIASIS [None]
  - IMMOBILE [None]
  - INSOMNIA [None]
  - MALAISE [None]
  - OROPHARYNGEAL PAIN [None]
  - PYREXIA [None]
  - RENAL FAILURE [None]
  - SYSTEMIC LUPUS ERYTHEMATOSUS [None]
  - TREMOR [None]
